FAERS Safety Report 7510107-8 (Version None)
Quarter: 2011Q2

REPORT INFORMATION
  Report Type: 
  Country: None (occurrence: None)
  Receive Date: 20110527
  Receipt Date: 20110524
  Transmission Date: 20111010
  Serious: Yes (Other)
  Sender: FDA-Public Use
  Company Number: US-PFIZER INC-2011112227

PATIENT
  Sex: Male
  Weight: 86.168 kg

DRUGS (6)
  1. NAPROXEN [Concomitant]
     Dosage: UNK
  2. LAMICTAL [Concomitant]
     Dosage: UNK
  3. ZOLOFT [Suspect]
     Indication: DEPRESSION
     Dosage: 50 MG, DAILY
     Route: 048
     Dates: start: 20110401
  4. NEURONTIN [Suspect]
     Indication: INTERVERTEBRAL DISC DEGENERATION
     Dosage: 600MG THREE TIMES DURING THE DAY AND TWO 600MG ONCE AT BED TIME
     Route: 048
     Dates: start: 20060101
  5. SEROQUEL [Concomitant]
     Dosage: UNK
  6. DIAZEPAM [Concomitant]
     Dosage: UNK

REACTIONS (4)
  - DEPRESSION [None]
  - VITAMIN D DECREASED [None]
  - FALL [None]
  - LOWER LIMB FRACTURE [None]
